FAERS Safety Report 7141207-2 (Version None)
Quarter: 2010Q4

REPORT INFORMATION
  Report Type: 
  Country: None (occurrence: None)
  Receive Date: 20101207
  Receipt Date: 20101129
  Transmission Date: 20110411
  Serious: Yes (Other)
  Sender: FDA-Public Use
  Company Number: US-JNJFOC-20101004631

PATIENT
  Sex: Female

DRUGS (1)
  1. LEVAQUIN [Suspect]
     Indication: CHRONIC SINUSITIS
     Route: 048

REACTIONS (4)
  - CARPAL TUNNEL SYNDROME [None]
  - DRUG EFFECT DECREASED [None]
  - TENDONITIS [None]
  - ULNAR TUNNEL SYNDROME [None]
